FAERS Safety Report 10437590 (Version 1)
Quarter: 2014Q3

REPORT INFORMATION
  Report Type: Spontaneous
  Country: TN (occurrence: TN)
  Receive Date: 20140908
  Receipt Date: 20140908
  Transmission Date: 20150326
  Serious: Yes (Hospitalization)
  Sender: FDA-Public Use
  Company Number: TN-MYLANLABS-2014M1003613

PATIENT

DRUGS (5)
  1. AMIKACIN [Concomitant]
     Active Substance: AMIKACIN
     Indication: ACUTE LYMPHOCYTIC LEUKAEMIA
     Route: 065
  2. TIENAM [Concomitant]
     Active Substance: CILASTATIN SODIUM\IMIPENEM
     Indication: ACUTE LYMPHOCYTIC LEUKAEMIA
     Route: 065
  3. METHOTREXATE [Suspect]
     Active Substance: METHOTREXATE
     Dosage: 5G ADMINISTERED IN UNDER 2H INSTEAD OF 24H
     Route: 041
  4. FOLINIC ACID [Concomitant]
     Active Substance: LEUCOVORIN
     Indication: ACUTE LYMPHOCYTIC LEUKAEMIA
     Dosage: 12MG/M2/6H
     Route: 065
  5. MERCAPTOPURINE. [Concomitant]
     Active Substance: MERCAPTOPURINE
     Indication: ACUTE LYMPHOCYTIC LEUKAEMIA
     Route: 065

REACTIONS (11)
  - Toxicity to various agents [Recovering/Resolving]
  - Hepatotoxicity [Recovering/Resolving]
  - Pancytopenia [Recovering/Resolving]
  - Renal failure acute [Recovering/Resolving]
  - Vomiting [Recovered/Resolved]
  - Diarrhoea [Not Recovered/Not Resolved]
  - Incorrect drug administration rate [Recovering/Resolving]
  - Nausea [Recovered/Resolved]
  - Odynophagia [Recovering/Resolving]
  - Abdominal pain [Not Recovered/Not Resolved]
  - Mucosal inflammation [Recovering/Resolving]
